FAERS Safety Report 7547030-9 (Version None)
Quarter: 2011Q2

REPORT INFORMATION
  Report Type: 
  Country: None (occurrence: None)
  Receive Date: 20110524
  Receipt Date: 20110301
  Transmission Date: 20111010
  Serious: No
  Sender: FDA-Public Use
  Company Number: 028403

PATIENT
  Sex: Male
  Weight: 46.3 kg

DRUGS (8)
  1. CIMZIA [Suspect]
     Indication: CROHN'S DISEASE
     Dosage: (SUBCUTANEOUS) ; (400 1X/MONTH SUBCUTANEOUS) ; (200 MG 1X/2 WEEKS SUBCUTANEOUS)
     Route: 058
     Dates: start: 20101019
  2. CIMZIA [Suspect]
     Indication: CROHN'S DISEASE
     Dosage: (SUBCUTANEOUS) ; (400 1X/MONTH SUBCUTANEOUS) ; (200 MG 1X/2 WEEKS SUBCUTANEOUS)
     Route: 058
     Dates: start: 20101116
  3. CIMZIA [Suspect]
     Indication: CROHN'S DISEASE
     Dosage: (SUBCUTANEOUS) ; (400 1X/MONTH SUBCUTANEOUS) ; (200 MG 1X/2 WEEKS SUBCUTANEOUS)
     Route: 058
     Dates: start: 20110101
  4. PENTASA [Concomitant]
  5. FISH OIL [Concomitant]
  6. PROBIOTICA [Concomitant]
  7. FOLIC ACID [Concomitant]
  8. CITRACAL /00108001/ [Concomitant]

REACTIONS (5)
  - NAUSEA [None]
  - PYREXIA [None]
  - MALAISE [None]
  - DECREASED APPETITE [None]
  - VOMITING [None]
